FAERS Safety Report 17845890 (Version 1)
Quarter: 2020Q2

REPORT INFORMATION
  Report Type: Spontaneous
  Country: JP (occurrence: JP)
  Receive Date: 20200601
  Receipt Date: 20200601
  Transmission Date: 20200714
  Serious: Yes (Other)
  Sender: FDA-Public Use
  Company Number: JP-GLAXOSMITHKLINE-JP2020089920

PATIENT
  Age: 50 Year
  Sex: Male

DRUGS (1)
  1. RELVAR ELLIPTA [Suspect]
     Active Substance: FLUTICASONE FUROATE\VILANTEROL TRIFENATATE
     Indication: COUGH VARIANT ASTHMA
     Dosage: 100 ?G
     Route: 055
     Dates: start: 2018

REACTIONS (2)
  - Arrhythmia [Unknown]
  - Extrasystoles [Unknown]

NARRATIVE: CASE EVENT DATE: 201909
